FAERS Safety Report 14120232 (Version 1)
Quarter: 2017Q4

REPORT INFORMATION
  Report Type: Spontaneous
  Country: CH (occurrence: CH)
  Receive Date: 20171024
  Receipt Date: 20171024
  Transmission Date: 20180321
  Serious: Yes (Death)
  Sender: FDA-Public Use
  Company Number: CH-ROCHE-2011320

PATIENT
  Age: 74 Year
  Sex: Male

DRUGS (13)
  1. TEMGESIC [Concomitant]
     Active Substance: BUPRENORPHINE HYDROCHLORIDE
     Route: 060
     Dates: start: 20170925, end: 20171006
  2. TOREM 200 TABLETS [Concomitant]
     Route: 065
     Dates: start: 20170923, end: 20171006
  3. METOLAZON [Concomitant]
     Active Substance: METOLAZONE
     Route: 065
     Dates: start: 20170922, end: 20170925
  4. PANTOZOL (SWITZERLAND) [Suspect]
     Active Substance: PANTOPRAZOLE SODIUM
     Indication: PROPHYLAXIS
     Route: 048
     Dates: start: 20170919
  5. MABTHERA [Suspect]
     Active Substance: RITUXIMAB
     Indication: THERAPEUTIC PROCEDURE
     Route: 042
     Dates: start: 20170825, end: 20170825
  6. CELLCEPT [Suspect]
     Active Substance: MYCOPHENOLATE MOFETIL\MYCOPHENOLATE MOFETIL HYDROCHLORIDE
     Indication: THERAPEUTIC PROCEDURE
     Dosage: DATE OF MOST RECENT DOSE: 25/SEP/2017
     Route: 048
     Dates: start: 20170911
  7. FRAGMIN [Concomitant]
     Active Substance: DALTEPARIN SODIUM
     Route: 065
     Dates: start: 20170918, end: 20171006
  8. ARANESP [Concomitant]
     Active Substance: DARBEPOETIN ALFA
     Route: 065
     Dates: start: 20171003, end: 20171003
  9. DAFALGAN [Suspect]
     Active Substance: ACETAMINOPHEN
     Indication: FRACTURE PAIN
     Route: 048
     Dates: start: 20170923
  10. FERINJECT [Concomitant]
     Active Substance: FERRIC CARBOXYMALTOSE
     Route: 065
     Dates: start: 20171003, end: 20171005
  11. PROGRAF [Concomitant]
     Active Substance: TACROLIMUS\TACROLIMUS ANHYDROUS
     Route: 065
     Dates: start: 20170911, end: 20170925
  12. NOVALGIN (SWITZERLAND) [Suspect]
     Active Substance: DIPYRONE
     Indication: FRACTURE PAIN
     Route: 048
     Dates: start: 20170923
  13. MAGNESIOCARD [Concomitant]
     Active Substance: MAGNESIUM ASPARTATE HYDROCHLORIDE
     Route: 065
     Dates: end: 20171006

REACTIONS (2)
  - Agranulocytosis [Fatal]
  - Neutrophil count decreased [Fatal]

NARRATIVE: CASE EVENT DATE: 201709
